FAERS Safety Report 23882817 (Version 1)
Quarter: 2024Q2

REPORT INFORMATION
  Report Type: Spontaneous
  Country: CH (occurrence: CH)
  Receive Date: 20240522
  Receipt Date: 20240522
  Transmission Date: 20240716
  Serious: Yes (Other)
  Sender: FDA-Public Use
  Company Number: None

PATIENT
  Age: 5 Decade
  Sex: Female

DRUGS (1)
  1. CAPECITABINE [Suspect]
     Active Substance: CAPECITABINE
     Indication: Adenocarcinoma of colon
     Dosage: THE TREATMENT STARTED WITH AN INITIAL DOSE OF 1500 MG (1000 MG/M2 ) TWICE?A DAY FOR 14 DAYS AND ...

REACTIONS (6)
  - Septic shock [Recovering/Resolving]
  - Enteritis [Recovering/Resolving]
  - Enterocolitis [Recovering/Resolving]
  - Ascites [Recovering/Resolving]
  - Hypoalbuminaemia [Recovering/Resolving]
  - Acute kidney injury [Recovering/Resolving]
